FAERS Safety Report 20255604 (Version 1)
Quarter: 2021Q4

REPORT INFORMATION
  Report Type: Spontaneous
  Country: CA (occurrence: CA)
  Receive Date: 20211230
  Receipt Date: 20211230
  Transmission Date: 20220304
  Serious: Yes (Other)
  Sender: FDA-Public Use
  Company Number: None

PATIENT
  Age: 50 Year
  Sex: Male

DRUGS (2)
  1. METHOTREXATE [Suspect]
     Active Substance: METHOTREXATE
     Indication: Pain
     Route: 065
  2. HYDROMORPHONE [Concomitant]
     Active Substance: HYDROMORPHONE
     Indication: Pain
     Route: 065

REACTIONS (7)
  - Cough [Unknown]
  - Crying [Unknown]
  - Dizziness [Unknown]
  - Insomnia [Unknown]
  - Nasopharyngitis [Unknown]
  - Pain [Unknown]
  - Rhinorrhoea [Unknown]
